FAERS Safety Report 5087438-7 (Version None)
Quarter: 2006Q3

REPORT INFORMATION
  Report Type: 
  Country: None (occurrence: None)
  Receive Date: 20060821
  Receipt Date: 20060821
  Transmission Date: 20061208
  Serious: Yes (Other)
  Sender: FDA-Public Use
  Company Number: None

PATIENT
  Sex: Female
  Weight: 49.8957 kg

DRUGS (2)
  1. LORTAB [Suspect]
     Indication: BACK PAIN
     Dosage: 5 MG  BID  PO
     Route: 048
     Dates: start: 20030101
  2. DARVOCET [Suspect]
     Indication: INTERVERTEBRAL DISC DEGENERATION
     Dosage: N100  BID  PO
     Route: 048
     Dates: start: 20020101

REACTIONS (5)
  - ABDOMINAL PAIN [None]
  - ALOPECIA [None]
  - DRUG INTOLERANCE [None]
  - NAUSEA [None]
  - PHARMACEUTICAL PRODUCT COMPLAINT [None]
